FAERS Safety Report 7190235-X (Version None)
Quarter: 2010Q4

REPORT INFORMATION
  Report Type: 
  Country: None (occurrence: None)
  Receive Date: 20101213
  Receipt Date: 20100413
  Transmission Date: 20110411
  Serious: Yes (Life-Threatening, Hospitalization)
  Sender: FDA-Public Use
  Company Number: 2010SP021768

PATIENT
  Age: 54 Year
  Sex: Male
  Weight: 85.7 kg

DRUGS (16)
  1. SCH 503034 [Suspect]
     Indication: HEPATITIS C
     Dates: start: 20070507, end: 20080121
  2. PEG-INTRON [Suspect]
     Indication: HEPATITIS C
     Dates: start: 20070507, end: 20080122
  3. PEG-INTRON [Suspect]
     Indication: HEPATITIS C
     Dates: start: 20080220
  4. REBETOL [Suspect]
     Indication: HEPATITIS C
     Dates: start: 20070507, end: 20080122
  5. PEG-INTRON [Suspect]
     Indication: HEPATITIS C
     Dates: start: 20080101, end: 20080122
  6. PEG-INTRON [Suspect]
     Indication: HEPATITIS C
     Dates: start: 20080220
  7. RIBAVIRIN [Suspect]
     Indication: HEPATITIS C
     Dates: start: 20080101, end: 20080122
  8. RIBAVIRIN [Suspect]
     Indication: HEPATITIS C
     Dates: start: 20080220
  9. ADVIL LIQUI-GELS [Suspect]
  10. PAXIL [Concomitant]
  11. PHENERGAN [Concomitant]
  12. AMBIEN [Concomitant]
  13. FLEXERIL [Concomitant]
  14. FIORICET [Concomitant]
  15. PREVACID [Concomitant]
  16. SCH 503034 [Suspect]

REACTIONS (79)
  - ABDOMINAL HERNIA [None]
  - ABDOMINAL PAIN [None]
  - ABDOMINAL PAIN UPPER [None]
  - ALOPECIA [None]
  - ANAEMIA [None]
  - ARTHRALGIA [None]
  - ASTHENIA [None]
  - BACK PAIN [None]
  - BLADDER DISORDER [None]
  - CARDIAC DISORDER [None]
  - CARDIOMEGALY [None]
  - CHEST PAIN [None]
  - CHILLS [None]
  - CONJUNCTIVITIS INFECTIVE [None]
  - COUGH [None]
  - DECREASED APPETITE [None]
  - DEHYDRATION [None]
  - DEPRESSION [None]
  - DIARRHOEA [None]
  - DIZZINESS [None]
  - DYSPEPSIA [None]
  - DYSPNOEA AT REST [None]
  - DYSURIA [None]
  - EMOTIONAL DISTRESS [None]
  - EYE HAEMORRHAGE [None]
  - EYE PAIN [None]
  - FATIGUE [None]
  - FEAR [None]
  - FEELING OF DESPAIR [None]
  - GALLBLADDER DISORDER [None]
  - GENITAL DISORDER MALE [None]
  - HEADACHE [None]
  - HYPERCALCAEMIA [None]
  - HYPERTENSION [None]
  - HYPOAESTHESIA [None]
  - HYPOTHYROIDISM [None]
  - IMPRISONMENT [None]
  - INJECTION SITE REACTION [None]
  - INSOMNIA [None]
  - INTERVERTEBRAL DISC DISORDER [None]
  - IRITIS [None]
  - IRRITABILITY [None]
  - JOINT STIFFNESS [None]
  - JOINT SWELLING [None]
  - LIVER DISORDER [None]
  - LUNG DISORDER [None]
  - MALAISE [None]
  - MIDDLE INSOMNIA [None]
  - MULTI-ORGAN DISORDER [None]
  - MUSCLE INJURY [None]
  - MUSCLE SPASMS [None]
  - NAUSEA [None]
  - NECK PAIN [None]
  - NEPHROLITHIASIS [None]
  - NEPHROPATHY [None]
  - NERVOUSNESS [None]
  - NIGHT SWEATS [None]
  - PAIN [None]
  - PALATAL OEDEMA [None]
  - PARAESTHESIA [None]
  - PHOTOPHOBIA [None]
  - PNEUMOTHORAX TRAUMATIC [None]
  - POLLAKIURIA [None]
  - PRURITUS [None]
  - PYREXIA [None]
  - RASH [None]
  - RENAL FAILURE [None]
  - RENAL FAILURE ACUTE [None]
  - RHINITIS SEASONAL [None]
  - SARCOIDOSIS [None]
  - SEXUALLY TRANSMITTED DISEASE [None]
  - SLEEP APNOEA SYNDROME [None]
  - THINKING ABNORMAL [None]
  - TINNITUS [None]
  - URINARY HESITATION [None]
  - VISION BLURRED [None]
  - VISUAL ACUITY REDUCED [None]
  - WEIGHT DECREASED [None]
  - WHEEZING [None]
